FAERS Safety Report 7089832-1 (Version None)
Quarter: 2010Q4

REPORT INFORMATION
  Report Type: 
  Country: None (occurrence: None)
  Receive Date: 20101108
  Receipt Date: 20101026
  Transmission Date: 20110411
  Serious: Yes (Other)
  Sender: FDA-Public Use
  Company Number: PHHY2010TR66568

PATIENT
  Sex: Male
  Weight: 80 kg

DRUGS (1)
  1. ACLASTA [Suspect]
     Dosage: 5 MG
     Route: 042

REACTIONS (2)
  - ATRIOVENTRICULAR BLOCK [None]
  - CARDIAC PACEMAKER INSERTION [None]
